FAERS Safety Report 8387522 (Version 4)
Quarter: 2013Q2

REPORT INFORMATION
  Report Type: Report from Study
  Country: BR (occurrence: BR)
  Receive Date: 20120202
  Receipt Date: 20130403
  Transmission Date: 20140414
  Serious: Yes (Hospitalization, Other)
  Sender: FDA-Public Use
  Company Number: BR-ROCHE-1033209

PATIENT
  Age: 51 Year
  Sex: Female
  Weight: 84 kg

DRUGS (15)
  1. MABTHERA [Suspect]
     Indication: RHEUMATOID ARTHRITIS
     Route: 042
     Dates: start: 20110429, end: 20110429
  2. MABTHERA [Suspect]
     Indication: SCLERODERMA
  3. MABTHERA [Suspect]
     Indication: VASCULITIS
  4. MABTHERA [Suspect]
     Indication: ANTIPHOSPHOLIPID SYNDROME
  5. MICARDIS [Concomitant]
     Indication: HYPERTENSION
     Dosage: 40/12.5 MG
     Route: 065
  6. FLUOXETINE [Concomitant]
     Route: 065
  7. OMEPRAZOLE [Concomitant]
     Route: 065
  8. ACETYLSALICYLIC ACID [Concomitant]
     Route: 065
  9. DAFLON (BRAZIL) [Concomitant]
     Route: 065
  10. MAREVAN [Concomitant]
     Route: 065
  11. FOLIC ACID [Concomitant]
     Route: 065
  12. VITAMIN B12 [Concomitant]
  13. DIPYRONE [Concomitant]
     Indication: PAIN
     Route: 065
  14. AMARYL [Concomitant]
  15. BENZETACIL [Concomitant]
     Route: 065

REACTIONS (5)
  - Skin ulcer [Not Recovered/Not Resolved]
  - Sepsis [Recovered/Resolved]
  - Erysipelas [Recovered/Resolved with Sequelae]
  - Anxiety [Unknown]
  - Sleep disorder [Unknown]
